FAERS Safety Report 5719661-X (Version None)
Quarter: 2008Q2

REPORT INFORMATION
  Report Type: 
  Country: None (occurrence: None)
  Receive Date: 20080424
  Receipt Date: 20080411
  Transmission Date: 20081010
  Serious: Yes (Hospitalization)
  Sender: FDA-Public Use
  Company Number: US023248

PATIENT
  Age: 46 Year
  Sex: Female

DRUGS (3)
  1. PROVIGIL [Suspect]
     Dosage: ORAL
     Route: 048
  2. LYRICA [Suspect]
  3. COPAXONE /01410902/ [Concomitant]

REACTIONS (4)
  - BLOOD PRESSURE INCREASED [None]
  - DRUG INTERACTION [None]
  - DYSARTHRIA [None]
  - TREMOR [None]
